FAERS Safety Report 6825447-5 (Version None)
Quarter: 2010Q3

REPORT INFORMATION
  Report Type: 
  Country: None (occurrence: None)
  Receive Date: 20100708
  Receipt Date: 20061210
  Transmission Date: 20110219
  Serious: No
  Sender: FDA-Public Use
  Company Number: US-PFIZER INC-2006154583

PATIENT
  Sex: Female

DRUGS (1)
  1. CHANTIX [Suspect]
     Dates: start: 20060101

REACTIONS (2)
  - NAUSEA [None]
  - VOMITING [None]
